FAERS Safety Report 7637119-8 (Version None)
Quarter: 2011Q3

REPORT INFORMATION
  Report Type: 
  Country: None (occurrence: None)
  Receive Date: 20110726
  Receipt Date: 20110711
  Transmission Date: 20111222
  Serious: Yes (Death)
  Sender: FDA-Public Use
  Company Number: US-WATSON-2011-11181

PATIENT
  Age: 10 Year
  Sex: Female

DRUGS (3)
  1. METHYLPREDNISOLONE ACETATE [Suspect]
     Indication: SERUM SICKNESS
     Dosage: 0.2 MG/KG, BID
     Route: 042
  2. ANTI-THYMOCYTE GLOBULIN RABBIT NOS [Suspect]
     Indication: BONE MARROW CONDITIONING REGIMEN
     Dosage: UNK
  3. CYCLOPHOSPHAMIDE [Suspect]
     Indication: BONE MARROW CONDITIONING REGIMEN
     Dosage: UNK

REACTIONS (2)
  - FUNGAL INFECTION [None]
  - MULTI-ORGAN FAILURE [None]
